FAERS Safety Report 23005118 (Version 7)
Quarter: 2024Q2

REPORT INFORMATION
  Report Type: Report from Study
  Country: JP (occurrence: JP)
  Receive Date: 20230929
  Receipt Date: 20240611
  Transmission Date: 20240716
  Serious: Yes (Other)
  Sender: FDA-Public Use
  Company Number: JP-002147023-NVSJ2022JP101264

PATIENT
  Age: 49 Year
  Sex: Female

DRUGS (3)
  1. SCEMBLIX [Suspect]
     Active Substance: ASCIMINIB HYDROCHLORIDE
     Indication: Chronic myeloid leukaemia
     Dosage: 80 MG
     Route: 048
     Dates: start: 20220725, end: 20230515
  2. SCEMBLIX [Suspect]
     Active Substance: ASCIMINIB HYDROCHLORIDE
     Dosage: 80 MG
     Route: 048
     Dates: start: 20230529
  3. RELUGOLIX [Suspect]
     Active Substance: RELUGOLIX
     Indication: Uterine leiomyoma
     Dosage: UNK
     Route: 065
     Dates: start: 20221007, end: 20230219

REACTIONS (3)
  - Biliary colic [Recovered/Resolved]
  - Amylase increased [Recovered/Resolved]
  - Liver disorder [Recovered/Resolved]

NARRATIVE: CASE EVENT DATE: 20221031
